FAERS Safety Report 9640774 (Version 1)
Quarter: 2013Q4

REPORT INFORMATION
  Report Type: Spontaneous
  Country: US (occurrence: None)
  Receive Date: 20131022
  Receipt Date: 20131022
  Transmission Date: 20140711
  Serious: Yes (Disabling)
  Sender: FDA-Public Use
  Company Number: None

PATIENT
  Age: 40 Year
  Sex: Female
  Weight: 57.15 kg

DRUGS (1)
  1. MIRENA [Suspect]

REACTIONS (12)
  - Acne cystic [None]
  - Weight fluctuation [None]
  - Depression [None]
  - Mood swings [None]
  - Fatigue [None]
  - Arthralgia [None]
  - Uterine cervical pain [None]
  - Bacterial vaginosis [None]
  - Headache [None]
  - Amnesia [None]
  - Speech disorder [None]
  - Transient ischaemic attack [None]
